FAERS Safety Report 9432574 (Version 1)
Quarter: 2013Q3

REPORT INFORMATION
  Report Type: Spontaneous
  Country: US (occurrence: US)
  Receive Date: 20130731
  Receipt Date: 20130731
  Transmission Date: 20140515
  Serious: No
  Sender: FDA-Public Use
  Company Number: US-GLAXOSMITHKLINE-A1026049A

PATIENT
  Age: 51 Year
  Sex: Female
  Weight: 68.2 kg

DRUGS (3)
  1. DYAZIDE [Suspect]
     Indication: HYPERTENSION
  2. LYRICA [Suspect]
     Indication: NERVE INJURY
     Dosage: 300MG TWICE PER DAY
     Dates: start: 201301, end: 201304
  3. LISINOPRIL [Suspect]
     Indication: HYPERTENSION
     Dosage: 40MG PER DAY

REACTIONS (3)
  - Local swelling [Not Recovered/Not Resolved]
  - Chest pain [Unknown]
  - Drug ineffective [Unknown]
